FAERS Safety Report 18111259 (Version 2)
Quarter: 2020Q3

REPORT INFORMATION
  Report Type: Spontaneous
  Country: US (occurrence: US)
  Receive Date: 20200805
  Receipt Date: 20200824
  Transmission Date: 20201103
  Serious: Yes (Other)
  Sender: FDA-Public Use
  Company Number: US-SPECGX-T202001396

PATIENT
  Sex: Male
  Weight: 87 kg

DRUGS (7)
  1. OXYCODONE [Interacting]
     Active Substance: OXYCODONE
     Dosage: 30 MILLIGRAM, TID
     Route: 048
  2. IBUPROFEN. [Suspect]
     Active Substance: IBUPROFEN
     Indication: PAIN
     Dosage: 300 MILLIGRAM
     Route: 048
  3. OXYCODONE [Suspect]
     Active Substance: OXYCODONE
     Indication: PAIN MANAGEMENT
     Dosage: UNK
     Route: 048
  4. OXYCODONE [Interacting]
     Active Substance: OXYCODONE
     Dosage: 30 MILLIGRAM (SIX TIMES A DAY)
     Route: 048
  5. FLEXERIL [Suspect]
     Active Substance: CYCLOBENZAPRINE HYDROCHLORIDE
     Indication: PAIN
     Dosage: UNK
     Route: 048
  6. LORTAB [Suspect]
     Active Substance: ACETAMINOPHEN\HYDROCODONE BITARTRATE
     Indication: PAIN
     Dosage: UNK
     Route: 048
  7. CODEINE [Suspect]
     Active Substance: CODEINE
     Indication: PAIN
     Dosage: 5 MILLIGRAM
     Route: 048

REACTIONS (14)
  - Drug ineffective [Unknown]
  - Nervousness [Unknown]
  - Spinal disorder [Unknown]
  - Nervous system disorder [Unknown]
  - Drug tolerance [Unknown]
  - Intervertebral disc protrusion [Unknown]
  - Cough [Unknown]
  - Spinal operation [Unknown]
  - Respiratory distress [Unknown]
  - Insomnia [Unknown]
  - Nausea [Unknown]
  - Gastrointestinal disorder [Unknown]
  - Migraine [Unknown]
  - Drug interaction [Unknown]
